FAERS Safety Report 26053454 (Version 1)
Quarter: 2025Q4

REPORT INFORMATION
  Report Type: Spontaneous
  Country: US (occurrence: None)
  Receive Date: 20251116
  Receipt Date: 20251116
  Transmission Date: 20260118
  Serious: Yes (Other)
  Sender: FDA-CTU
  Company Number: None

PATIENT
  Age: 51 Year
  Sex: Female
  Weight: 76 kg

DRUGS (12)
  1. DEPO-PROVERA [Suspect]
     Active Substance: MEDROXYPROGESTERONE ACETATE
     Indication: Pelvic pain
     Dosage: OTHER FREQUENCY : ONCE, 90 DAY;?
     Route: 030
     Dates: start: 20250610, end: 20250610
  2. RX Duloxetine [Concomitant]
  3. HYDROXYCHLOROQUINE [Concomitant]
     Active Substance: HYDROXYCHLOROQUINE
  4. METFORMIN [Concomitant]
     Active Substance: METFORMIN HYDROCHLORIDE
  5. w/f Norethindrone [Concomitant]
  6. PREDNISONE [Concomitant]
     Active Substance: PREDNISONE
  7. Titration [Concomitant]
  8. OTC Chlorpheniramine Maleate [Concomitant]
  9. VITAMIN D3 [Concomitant]
     Active Substance: CHOLECALCIFEROL
  10. w/b.i.b [Concomitant]
  11. b.i.w. [Concomitant]
  12. HYOSCYAMINE [Concomitant]
     Active Substance: HYOSCYAMINE

REACTIONS (5)
  - Wrong product administered [None]
  - Drug hypersensitivity [None]
  - Type IV hypersensitivity reaction [None]
  - Insomnia [None]
  - Emotional distress [None]

NARRATIVE: CASE EVENT DATE: 20250610
